FAERS Safety Report 7548923-9 (Version None)
Quarter: 2011Q2

REPORT INFORMATION
  Report Type: 
  Country: None (occurrence: None)
  Receive Date: 20110615
  Receipt Date: 20110531
  Transmission Date: 20111010
  Serious: Yes (Hospitalization)
  Sender: FDA-Public Use
  Company Number: NL-JNJFOC-20110602075

PATIENT
  Sex: Male
  Weight: 52.7 kg

DRUGS (10)
  1. HUMIRA [Concomitant]
     Indication: CROHN'S DISEASE
     Dates: start: 20101201, end: 20110202
  2. CALCICHEW [Concomitant]
  3. METHOTREXATE [Concomitant]
  4. ADRENALIN IN OIL INJ [Concomitant]
  5. STEROIDS NOS [Concomitant]
  6. REMICADE [Suspect]
     Indication: CROHN'S DISEASE
     Route: 042
     Dates: start: 20110223
  7. REMICADE [Suspect]
     Route: 042
     Dates: start: 20110323
  8. REMICADE [Suspect]
     Route: 042
     Dates: start: 20110209
  9. FOLIUMZUUR [Concomitant]
  10. ANTIHISTAMINES [Concomitant]

REACTIONS (1)
  - CROHN'S DISEASE [None]
